FAERS Safety Report 16196675 (Version 1)
Quarter: 2019Q2

REPORT INFORMATION
  Report Type: Spontaneous
  Country: US (occurrence: US)
  Receive Date: 20190311
  Receipt Date: 20190311
  Transmission Date: 20190711
  Serious: No
  Sender: FDA-Public Use
  Company Number: None

PATIENT
  Age: 67 Year
  Sex: Female

DRUGS (1)
  1. ENBREL [Suspect]
     Active Substance: ETANERCEPT
     Indication: RHEUMATOID ARTHRITIS
     Dates: start: 201902

REACTIONS (4)
  - Product prescribing issue [None]
  - Symptom recurrence [None]
  - Therapy cessation [None]
  - Rheumatoid arthritis [None]

NARRATIVE: CASE EVENT DATE: 20190225
